FAERS Safety Report 8488399-0 (Version None)
Quarter: 2012Q3

REPORT INFORMATION
  Report Type: 
  Country: None (occurrence: None)
  Receive Date: 20120705
  Receipt Date: 20120626
  Transmission Date: 20120928
  Serious: Yes (Other)
  Sender: FDA-Public Use
  Company Number: US-JNJFOC-20120613192

PATIENT
  Age: 6 Decade
  Sex: Female

DRUGS (2)
  1. STELARA [Suspect]
     Indication: PSORIASIS
     Dosage: EVENT OCCURED AFTER SECOND DOSE OF USTEKINUMAB
     Route: 058
     Dates: start: 20120101, end: 20120101
  2. UNKNOWN MEDICATION [Concomitant]
     Route: 065

REACTIONS (1)
  - HYPERTENSION [None]
